FAERS Safety Report 4704429-3 (Version None)
Quarter: 2005Q2

REPORT INFORMATION
  Report Type: 
  Country: None (occurrence: None)
  Receive Date: 20050630
  Receipt Date: 20050630
  Transmission Date: 20051028
  Serious: No
  Sender: FDA-Public Use
  Company Number: None

PATIENT
  Sex: Female
  Weight: 126.5536 kg

DRUGS (1)
  1. VICODIN [Suspect]
     Indication: PAIN
     Dosage: 10/660 ONE Q 6 H PRN
     Dates: start: 20030407

REACTIONS (1)
  - DRUG INEFFECTIVE [None]
